FAERS Safety Report 7355855-8 (Version None)
Quarter: 2011Q1

REPORT INFORMATION
  Report Type: 
  Country: None (occurrence: None)
  Receive Date: 20110316
  Receipt Date: 20110308
  Transmission Date: 20110831
  Serious: Yes (Other)
  Sender: FDA-Public Use
  Company Number: US-BRISTOL-MYERS SQUIBB COMPANY-15594567

PATIENT
  Age: 68 Year
  Sex: Male
  Weight: 99 kg

DRUGS (3)
  1. COUMADIN [Suspect]
     Indication: THROMBOSIS
     Dosage: 1 DF = 2-3MG QD, CURRENTLY ON 4MG OD
     Dates: start: 20101101
  2. DIAZEPAM [Concomitant]
     Indication: INSOMNIA
  3. DIAZEPAM [Concomitant]
     Indication: ANXIETY

REACTIONS (1)
  - PLATELET COUNT DECREASED [None]
